FAERS Safety Report 8956923 (Version 5)
Quarter: 2013Q1

REPORT INFORMATION
  Report Type: Spontaneous
  Country: PT (occurrence: PT)
  Receive Date: 20121210
  Receipt Date: 20130318
  Transmission Date: 20140127
  Serious: Yes (Hospitalization, Other)
  Sender: FDA-Public Use
  Company Number: PT-VERTEX PHARMACEUTICALS INC.-2012-023174

PATIENT
  Sex: Female

DRUGS (6)
  1. INCIVO [Suspect]
     Indication: HEPATITIS C
     Dosage: DOSAGE FORM: TABLET
  2. RIBAVIRIN [Concomitant]
     Indication: HEPATITIS C
     Dosage: 600 MG, UNK
  3. RIBAVIRIN [Concomitant]
     Dosage: 800 MG, UNK
  4. RIBAVIRIN [Concomitant]
     Dosage: 200 MG, UNK
  5. RIBAVIRIN [Concomitant]
     Dosage: DOSAGE FORM: UNSPECIFIED
     Route: 065
  6. PEG INTERFERON [Concomitant]
     Indication: HEPATITIS C
     Dosage: UNK

REACTIONS (7)
  - Eosinophilia [Unknown]
  - Haemoglobin decreased [Recovered/Resolved]
  - Transfusion [Recovered/Resolved]
  - Rash [Recovered/Resolved]
  - Medication error [Recovered/Resolved]
  - Anorectal discomfort [Unknown]
  - Pruritus [Recovered/Resolved]
